FAERS Safety Report 12669523 (Version 1)
Quarter: 2016Q3

REPORT INFORMATION
  Report Type: Spontaneous
  Country: US (occurrence: US)
  Receive Date: 20160819
  Receipt Date: 20160819
  Transmission Date: 20161109
  Serious: Yes (Hospitalization)
  Sender: FDA-Public Use
  Company Number: US-ACTELION-A-US2016-140877

PATIENT
  Age: 46 Year
  Sex: Female

DRUGS (4)
  1. UPTRAVI [Suspect]
     Active Substance: SELEXIPAG
     Indication: PULMONARY ARTERIAL HYPERTENSION
     Dosage: 1000 MCG, BID
     Route: 048
  2. UPTRAVI [Suspect]
     Active Substance: SELEXIPAG
     Dosage: UNK
     Route: 048
     Dates: start: 201606
  3. REMODULIN [Suspect]
     Active Substance: TREPROSTINIL
     Indication: PULMONARY ARTERIAL HYPERTENSION
     Dosage: 126 NG/KG, PER MIN
     Route: 042
     Dates: end: 201606
  4. REMODULIN [Suspect]
     Active Substance: TREPROSTINIL
     Dosage: UNK NG/KG, PER MIN
     Route: 042
     Dates: start: 20160811

REACTIONS (3)
  - Cardiac failure [Unknown]
  - Carbon dioxide decreased [Unknown]
  - Oedema [Unknown]

NARRATIVE: CASE EVENT DATE: 20160811
